FAERS Safety Report 21105434 (Version 2)
Quarter: 2022Q3

REPORT INFORMATION
  Report Type: Spontaneous
  Country: US (occurrence: US)
  Receive Date: 20220720
  Receipt Date: 20220815
  Transmission Date: 20221027
  Serious: No
  Sender: FDA-Public Use
  Company Number: US-PFIZER INC-202200975133

PATIENT
  Age: 74 Year
  Sex: Female
  Weight: 70.31 kg

DRUGS (2)
  1. PAXLOVID [Suspect]
     Active Substance: NIRMATRELVIR\RITONAVIR
     Indication: COVID-19 treatment
     Dosage: [PF-07321332 300 MG]/[RITONAVIR 100 MG]; 2X/DAY;
     Route: 048
     Dates: start: 20220711
  2. PEPCID [Concomitant]
     Active Substance: FAMOTIDINE
     Indication: Hyperchlorhydria
     Dosage: 1 DF, 2X/DAY
     Dates: end: 20220710

REACTIONS (4)
  - Polyuria [Not Recovered/Not Resolved]
  - Constipation [Recovered/Resolved]
  - Balance disorder [Recovered/Resolved]
  - Weight decreased [Unknown]

NARRATIVE: CASE EVENT DATE: 20220711
